FAERS Safety Report 19385232 (Version 1)
Quarter: 2021Q2

REPORT INFORMATION
  Report Type: Spontaneous
  Country: FR (occurrence: FR)
  Receive Date: 20210608
  Receipt Date: 20210608
  Transmission Date: 20210717
  Serious: Yes (Death)
  Sender: FDA-Public Use
  Company Number: FR-ROCHE-2844515

PATIENT
  Age: 71 Year
  Sex: Male

DRUGS (3)
  1. ETOPOSIDE MYLAN [Suspect]
     Active Substance: ETOPOSIDE
     Indication: SMALL CELL LUNG CANCER METASTATIC
     Dosage: ON 23/MAY/2021, MOST RECENT DOSE
     Route: 065
     Dates: start: 20210521
  2. TECENTRIQ [Suspect]
     Active Substance: ATEZOLIZUMAB
     Indication: SMALL CELL LUNG CANCER METASTATIC
     Dosage: ON 21/MAY/2021, MOST RECENT DOSE
     Route: 065
     Dates: start: 20210521
  3. CARBOPLATIN ACCORD [Suspect]
     Active Substance: CARBOPLATIN
     Indication: SMALL CELL LUNG CANCER METASTATIC
     Route: 065
     Dates: start: 20210521

REACTIONS (1)
  - Tumour lysis syndrome [Fatal]

NARRATIVE: CASE EVENT DATE: 20210523
